FAERS Safety Report 4330214-0 (Version None)
Quarter: 2004Q2

REPORT INFORMATION
  Report Type: 
  Country: None (occurrence: None)
  Receive Date: 20040401
  Receipt Date: 20040317
  Transmission Date: 20050107
  Serious: Yes (Death, Hospitalization)
  Sender: FDA-Public Use
  Company Number: HQWYE669518JUN03

PATIENT
  Age: 40 Year
  Sex: Male
  Weight: 112.9 kg

DRUGS (5)
  1. MYLOTARG [Suspect]
     Indication: ACUTE MYELOID LEUKAEMIA
     Dosage: 22 MG 1 X PER 1 DAY, INTRAVENOUS
     Route: 042
     Dates: start: 20030502, end: 20030502
  2. MYLOTARG [Suspect]
     Indication: ACUTE MYELOID LEUKAEMIA
     Dosage: 22 MG 1 X PER 1 DAY, INTRAVENOUS
     Route: 042
     Dates: start: 20030516, end: 20030516
  3. OXYCODONE (OXYCODONE) [Concomitant]
  4. MAGNESIUM (MAGNESIUM) [Concomitant]
  5. DAPSONE [Concomitant]

REACTIONS (9)
  - ACUTE MYELOID LEUKAEMIA [None]
  - BLOOD CREATININE INCREASED [None]
  - DISEASE PROGRESSION [None]
  - FAECAL OCCULT BLOOD POSITIVE [None]
  - FEBRILE NEUTROPENIA [None]
  - PANCYTOPENIA [None]
  - PNEUMONIA [None]
  - STAPHYLOCOCCAL INFECTION [None]
  - VENTRICULAR DYSFUNCTION [None]
